FAERS Safety Report 11094176 (Version 2)
Quarter: 2015Q2

REPORT INFORMATION
  Report Type: Spontaneous
  Country: US (occurrence: US)
  Receive Date: 20150506
  Receipt Date: 20150522
  Transmission Date: 20150821
  Serious: Yes (Other)
  Sender: FDA-Public Use
  Company Number: US-GLAXOSMITHKLINE-US2015057731

PATIENT
  Age: 58 Year
  Sex: Female

DRUGS (13)
  1. BIOTIN [Concomitant]
     Active Substance: BIOTIN
  2. OMEPRAZOLE. [Concomitant]
     Active Substance: OMEPRAZOLE
  3. VITAMIN D3 [Concomitant]
     Active Substance: CHOLECALCIFEROL
  4. PHYSOSTIGMINE [Concomitant]
     Active Substance: PHYSOSTIGMINE
  5. BENLYSTA [Suspect]
     Active Substance: BELIMUMAB
     Indication: SYSTEMIC LUPUS ERYTHEMATOSUS
     Dosage: UNK, CYC
     Dates: start: 201211
  6. PLAQUENIL [Concomitant]
     Active Substance: HYDROXYCHLOROQUINE SULFATE
  7. FISH OIL [Concomitant]
     Active Substance: FISH OIL
  8. ESTRADIOL. [Concomitant]
     Active Substance: ESTRADIOL
  9. GABAPENTIN. [Concomitant]
     Active Substance: GABAPENTIN
  10. TRAZODONE [Concomitant]
     Active Substance: TRAZODONE HYDROCHLORIDE
  11. BUPROPION XL [Concomitant]
     Active Substance: BUPROPION
  12. VIMOVO [Concomitant]
     Active Substance: ESOMEPRAZOLE MAGNESIUM\NAPROXEN
  13. PREDNISONE. [Concomitant]
     Active Substance: PREDNISONE

REACTIONS (10)
  - Malaise [Recovered/Resolved]
  - Lung disorder [Unknown]
  - Pneumonia [Recovered/Resolved]
  - Abasia [Recovered/Resolved]
  - Nasopharyngitis [Recovered/Resolved]
  - Weight bearing difficulty [Recovered/Resolved]
  - Back injury [Recovered/Resolved]
  - Decreased immune responsiveness [Not Recovered/Not Resolved]
  - Cough [Recovered/Resolved]
  - Drug dose omission [Unknown]

NARRATIVE: CASE EVENT DATE: 201501
